FAERS Safety Report 10337473 (Version 3)
Quarter: 2014Q3

REPORT INFORMATION
  Report Type: Spontaneous
  Country: JP (occurrence: JP)
  Receive Date: 20140724
  Receipt Date: 20140825
  Transmission Date: 20150326
  Serious: Yes (Life-Threatening, Hospitalization, Other)
  Sender: FDA-Public Use
  Company Number: JP-ROCHE-1437325

PATIENT
  Age: 2 Month
  Sex: Male
  Weight: 4 kg

DRUGS (8)
  1. DENOSINE [Suspect]
     Active Substance: GANCICLOVIR
     Indication: CYTOMEGALOVIRUS INFECTION
     Route: 041
     Dates: start: 20131116, end: 20131218
  2. FOSCARNET [Suspect]
     Active Substance: FOSCARNET
     Indication: PRODUCT USED FOR UNKNOWN INDICATION
     Route: 065
  3. MENATETRENONE [Concomitant]
     Active Substance: MENATETRENONE
     Indication: VITAMIN K DEFICIENCY
     Route: 048
     Dates: start: 20140315, end: 20140612
  4. VALIXA [Suspect]
     Active Substance: VALGANCICLOVIR
     Indication: PRODUCT USED FOR UNKNOWN INDICATION
     Route: 048
     Dates: start: 20131218, end: 20140403
  5. SODIUM PHOSPHATE [Concomitant]
     Active Substance: SODIUM PHOSPHATE
     Indication: RICKETS
     Route: 048
     Dates: start: 20131129
  6. BACTRIM BALSAMICO [Concomitant]
     Indication: INFECTION
     Route: 048
  7. L CARTIN FF [Concomitant]
     Route: 048
     Dates: start: 20131128, end: 20140804
  8. ALFAROL [Concomitant]
     Active Substance: ALFACALCIDOL
     Indication: RICKETS
     Route: 048
     Dates: start: 20131215, end: 20140424

REACTIONS (4)
  - Cytokine storm [Recovering/Resolving]
  - Cholestasis [Recovering/Resolving]
  - Bone marrow failure [Not Recovered/Not Resolved]
  - Platelet count decreased [Recovering/Resolving]

NARRATIVE: CASE EVENT DATE: 20131231
